FAERS Safety Report 12218690 (Version 1)
Quarter: 2016Q1

REPORT INFORMATION
  Report Type: Report from Study
  Country: US (occurrence: US)
  Receive Date: 20160329
  Receipt Date: 20160329
  Transmission Date: 20160526
  Serious: Yes (Hospitalization, Other)
  Sender: FDA-Public Use
  Company Number: US-AMGEN-USASL2016036975

PATIENT
  Age: 63 Year
  Sex: Female

DRUGS (2)
  1. ENBREL [Suspect]
     Active Substance: ETANERCEPT
     Indication: RHEUMATOID ARTHRITIS
     Dosage: UNK UNK, QWK
     Route: 065
  2. METHOTREXATE [Concomitant]
     Active Substance: METHOTREXATE
     Indication: RHEUMATOID ARTHRITIS
     Dosage: UNK UNK, QWK
     Route: 065

REACTIONS (9)
  - Infection [Unknown]
  - Balance disorder [Unknown]
  - Tricuspid valve repair [Unknown]
  - Visual impairment [Unknown]
  - Mitral valve replacement [Unknown]
  - Endocarditis [Unknown]
  - Cardiac valve vegetation [Unknown]
  - Embolic stroke [Unknown]
  - Tremor [Unknown]

NARRATIVE: CASE EVENT DATE: 2015
